FAERS Safety Report 15004809 (Version 1)
Quarter: 2018Q2

REPORT INFORMATION
  Report Type: Spontaneous
  Country: US (occurrence: US)
  Receive Date: 20180613
  Receipt Date: 20180613
  Transmission Date: 20180711
  Serious: No
  Sender: FDA-Public Use
  Company Number: US-TEVA-2018-US-900630

PATIENT
  Sex: Female

DRUGS (2)
  1. ACTONEL [Suspect]
     Active Substance: RISEDRONATE SODIUM
     Indication: OSTEOPOROSIS
     Route: 065
     Dates: start: 201803, end: 201805
  2. ACTONEL [Suspect]
     Active Substance: RISEDRONATE SODIUM
     Route: 065

REACTIONS (9)
  - Dysphonia [Not Recovered/Not Resolved]
  - Gastrooesophageal reflux disease [Unknown]
  - Eructation [Not Recovered/Not Resolved]
  - Bone pain [Not Recovered/Not Resolved]
  - Abdominal pain upper [Not Recovered/Not Resolved]
  - Throat tightness [Not Recovered/Not Resolved]
  - Flatulence [Not Recovered/Not Resolved]
  - Throat irritation [Not Recovered/Not Resolved]
  - Chest pain [Not Recovered/Not Resolved]
